FAERS Safety Report 11860896 (Version 4)
Quarter: 2016Q2

REPORT INFORMATION
  Report Type: Spontaneous
  Country: US (occurrence: US)
  Receive Date: 20151222
  Receipt Date: 20160510
  Transmission Date: 20160815
  Serious: Yes (Other)
  Sender: FDA-Public Use
  Company Number: US-ASTRAZENECA-2015SF25079

PATIENT
  Age: 856 Month
  Sex: Female

DRUGS (1)
  1. BRILINTA [Suspect]
     Active Substance: TICAGRELOR
     Indication: ACUTE CORONARY SYNDROME
     Route: 048
     Dates: start: 201507

REACTIONS (9)
  - Dizziness [Unknown]
  - Laceration [Unknown]
  - Fall [Unknown]
  - Contusion [Unknown]
  - Pain in extremity [Unknown]
  - Malaise [Unknown]
  - Haemorrhage [Recovered/Resolved]
  - Dyspnoea [Unknown]
  - Seasonal allergy [Unknown]

NARRATIVE: CASE EVENT DATE: 201511
